FAERS Safety Report 4352512-7 (Version None)
Quarter: 2004Q2

REPORT INFORMATION
  Report Type: 
  Country: None (occurrence: None)
  Receive Date: 20040428
  Receipt Date: 20040414
  Transmission Date: 20050107
  Serious: Yes (Disabling)
  Sender: FDA-Public Use
  Company Number: 2004AP01441

PATIENT
  Age: 81 Year
  Sex: Female
  Weight: 30.75 kg

DRUGS (6)
  1. OMEPRAZOLE [Suspect]
     Indication: GASTRIC ULCER
     Dosage: 40 MG DAILY IV
     Route: 042
     Dates: start: 20040203, end: 20040213
  2. FLUMARIN [Suspect]
     Indication: INFLAMMATION
     Dosage: 2 G DAILY IVD
     Route: 042
     Dates: start: 20040202, end: 20040215
  3. ULCERLMIN [Concomitant]
  4. SABMEL [Concomitant]
  5. ULCERLMIN [Concomitant]
  6. SANMEL [Concomitant]

REACTIONS (1)
  - INTERSTITIAL LUNG DISEASE [None]
